FAERS Safety Report 5382174-1 (Version None)
Quarter: 2007Q3

REPORT INFORMATION
  Report Type: 
  Country: None (occurrence: None)
  Receive Date: 20070709
  Receipt Date: 20070627
  Transmission Date: 20080115
  Serious: Yes (Disabling, Other)
  Sender: FDA-Public Use
  Company Number: FR-PFIZER INC-2007052187

PATIENT
  Age: 82 Year
  Sex: Male

DRUGS (4)
  1. ZOXAN LP [Suspect]
     Indication: ADENOMA BENIGN
     Route: 048
     Dates: start: 20070101, end: 20070515
  2. OXAZEPAM [Concomitant]
  3. GINKGO BILOBA EXTRACT [Concomitant]
  4. FLECAINIDE ACETATE [Concomitant]

REACTIONS (2)
  - CONDITION AGGRAVATED [None]
  - DIVERTICULITIS [None]
